FAERS Safety Report 5323165-6 (Version None)
Quarter: 2007Q2

REPORT INFORMATION
  Report Type: 
  Country: None (occurrence: None)
  Receive Date: 20070220
  Receipt Date: 20061116
  Transmission Date: 20071010
  Serious: No
  Sender: FDA-Public Use
  Company Number: WAES 0611USA05161

PATIENT
  Age: 58 Year
  Sex: Female

DRUGS (1)
  1. JANUVIA [Suspect]
     Indication: DIABETES MELLITUS
     Dosage: PO
     Route: 048
     Dates: start: 20061115, end: 20061116

REACTIONS (6)
  - ABDOMINAL DISTENSION [None]
  - EYE IRRITATION [None]
  - NAUSEA [None]
  - PRURITUS [None]
  - RASH MACULAR [None]
  - WRONG TECHNIQUE IN DRUG USAGE PROCESS [None]
